FAERS Safety Report 6456890-4 (Version None)
Quarter: 2009Q4

REPORT INFORMATION
  Report Type: 
  Country: None (occurrence: None)
  Receive Date: 20091125
  Receipt Date: 20091116
  Transmission Date: 20100525
  Serious: Yes (Other)
  Sender: FDA-Public Use
  Company Number: US-JNJCH-2009030263

PATIENT
  Age: 20 Year
  Sex: Male

DRUGS (1)
  1. BENADRYL [Suspect]
     Indication: HYPERSENSITIVITY
     Dosage: TEXT:2 TABLETS EVERY 4 HOURS
     Route: 048

REACTIONS (9)
  - CONDITION AGGRAVATED [None]
  - ERYTHEMA [None]
  - LOCAL SWELLING [None]
  - OFF LABEL USE [None]
  - OVERDOSE [None]
  - PHARYNGEAL ERYTHEMA [None]
  - PHARYNGEAL OEDEMA [None]
  - SOMNOLENCE [None]
  - SWELLING FACE [None]
